FAERS Safety Report 13076914 (Version 3)
Quarter: 2021Q1

REPORT INFORMATION
  Report Type: Spontaneous
  Country: CA (occurrence: CA)
  Receive Date: 20161230
  Receipt Date: 20210111
  Transmission Date: 20210419
  Serious: Yes (Other)
  Sender: FDA-Public Use
  Company Number: CA-PFIZER INC-2016204288

PATIENT
  Age: 59 Year
  Sex: Male

DRUGS (8)
  1. ALEVE [Concomitant]
     Active Substance: NAPROXEN SODIUM
     Dosage: 1?2 TABS DAILY AS NEEDED
     Route: 065
  2. ENBREL [Suspect]
     Active Substance: ETANERCEPT
     Indication: RHEUMATOID ARTHRITIS
     Dosage: 50 MG, WEEKLY
     Dates: start: 201410, end: 201503
  3. SIMPONI [Suspect]
     Active Substance: GOLIMUMAB
     Dosage: 50 MG, Q3WKS
     Dates: start: 201404, end: 201410
  4. PLAQUENIL [Concomitant]
     Active Substance: HYDROXYCHLOROQUINE SULFATE
     Dosage: 200 MG, 2X/DAY
     Route: 065
     Dates: start: 200711
  5. REMICADE [Suspect]
     Active Substance: INFLIXIMAB
     Dosage: 300 MG, Q8WKS
     Dates: start: 201307, end: 201309
  6. PLAQUENIL [Concomitant]
     Active Substance: HYDROXYCHLOROQUINE SULFATE
     Indication: RHEUMATOID ARTHRITIS
     Dosage: 400 MG, DAILY
  7. METHOTREXATE SODIUM. [Suspect]
     Active Substance: METHOTREXATE SODIUM
     Indication: RHEUMATOID ARTHRITIS
     Dosage: 20?25 MG, WEEKLY
     Route: 048
     Dates: start: 200901, end: 201204
  8. CORTISONE [Concomitant]
     Active Substance: CORTISONE
     Dosage: UNK

REACTIONS (8)
  - Illness [Unknown]
  - Back pain [Unknown]
  - Therapeutic product effect decreased [Unknown]
  - Musculoskeletal stiffness [Unknown]
  - Rheumatoid arthritis [Unknown]
  - Drug ineffective [Unknown]
  - Pain in extremity [Unknown]
  - Drug intolerance [Unknown]
